FAERS Safety Report 8422519-9 (Version None)
Quarter: 2012Q2

REPORT INFORMATION
  Report Type: 
  Country: None (occurrence: None)
  Receive Date: 20120604
  Receipt Date: 20120529
  Transmission Date: 20120825
  Serious: Yes (Other)
  Sender: FDA-Public Use
  Company Number: A0969831A

PATIENT
  Age: 50 Year
  Sex: Female

DRUGS (2)
  1. CLINDAMYCIN [Suspect]
     Indication: PRODUCT USED FOR UNKNOWN INDICATION
     Dosage: UNK
  2. BENZOYL PEROXIDE (BENZOYL PEROXIDE) [Suspect]
     Indication: RASH
     Dosage: UNK, FOUR TIMES PER DAY

REACTIONS (16)
  - SKIN DISCOLOURATION [None]
  - SKIN CHAPPED [None]
  - ACNE [None]
  - DRUG ADMINISTRATION ERROR [None]
  - DRUG INTERACTION [None]
  - INAPPROPRIATE SCHEDULE OF DRUG ADMINISTRATION [None]
  - WOUND [None]
  - RASH [None]
  - SKIN BURNING SENSATION [None]
  - SKIN ATROPHY [None]
  - SCRATCH [None]
  - DERMATITIS [None]
  - PRURITUS [None]
  - RASH MACULAR [None]
  - CONDITION AGGRAVATED [None]
  - DRY SKIN [None]
